FAERS Safety Report 6720092-4 (Version None)
Quarter: 2010Q2

REPORT INFORMATION
  Report Type: 
  Country: None (occurrence: None)
  Receive Date: 20100511
  Receipt Date: 20100507
  Transmission Date: 20101027
  Serious: Yes (Hospitalization)
  Sender: FDA-Public Use
  Company Number: FR-WYE-G05842710

PATIENT
  Age: 18 Month
  Sex: Female

DRUGS (1)
  1. ADVIL LIQUI-GELS [Suspect]
     Indication: TONSILLITIS
     Dosage: UNKNOWN
     Route: 048
     Dates: start: 20100201, end: 20100201

REACTIONS (1)
  - CYANOSIS [None]
